FAERS Safety Report 14133770 (Version 1)
Quarter: 2017Q4

REPORT INFORMATION
  Report Type: Spontaneous
  Country: US (occurrence: None)
  Receive Date: 20171026
  Receipt Date: 20171026
  Transmission Date: 20180321
  Serious: No
  Sender: FDA-Public Use
  Company Number: None

PATIENT
  Age: 69 Year
  Sex: Male

DRUGS (1)
  1. APREMILAST [Suspect]
     Active Substance: APREMILAST
     Route: 048
     Dates: start: 20170814, end: 20170829

REACTIONS (2)
  - Diarrhoea [None]
  - Depression [None]

NARRATIVE: CASE EVENT DATE: 20170829
